FAERS Safety Report 14714016 (Version 3)
Quarter: 2018Q2

REPORT INFORMATION
  Report Type: Spontaneous
  Country: JP (occurrence: JP)
  Receive Date: 20180404
  Receipt Date: 20180521
  Transmission Date: 20180711
  Serious: Yes (Other)
  Sender: FDA-Public Use
  Company Number: JP-ROCHE-2100045

PATIENT
  Age: 74 Year
  Sex: Male

DRUGS (1)
  1. ALECENSA [Suspect]
     Active Substance: ALECTINIB HYDROCHLORIDE
     Indication: NON-SMALL CELL LUNG CANCER
     Dosage: DATE OF LAST DOSE ON 28/FEB/2018
     Route: 048
     Dates: start: 20171004

REACTIONS (1)
  - Haemoptysis [Recovering/Resolving]

NARRATIVE: CASE EVENT DATE: 201802
